FAERS Safety Report 15841675 (Version 1)
Quarter: 2019Q1

REPORT INFORMATION
  Report Type: Spontaneous
  Country: CA (occurrence: CA)
  Receive Date: 20190118
  Receipt Date: 20190118
  Transmission Date: 20190417
  Serious: Yes (Other)
  Sender: FDA-Public Use
  Company Number: CA-ASTRAZENECA-2019SE06696

PATIENT
  Sex: Female

DRUGS (2)
  1. LOSEC [Suspect]
     Active Substance: OMEPRAZOLE
     Route: 048
  2. RANITIDINE. [Concomitant]
     Active Substance: RANITIDINE

REACTIONS (15)
  - Asthenia [Unknown]
  - Insomnia [Unknown]
  - Pollakiuria [Unknown]
  - Bone density decreased [Unknown]
  - Dry eye [Unknown]
  - Dry mouth [Unknown]
  - Chest pain [Unknown]
  - Abdominal discomfort [Unknown]
  - Decreased appetite [Unknown]
  - Musculoskeletal stiffness [Unknown]
  - Infection [Unknown]
  - Gastrooesophageal reflux disease [Unknown]
  - Sinus disorder [Unknown]
  - Bone decalcification [Unknown]
  - Burning sensation [Unknown]
